FAERS Safety Report 7357564-8 (Version None)
Quarter: 2011Q1

REPORT INFORMATION
  Report Type: 
  Country: None (occurrence: None)
  Receive Date: 20110317
  Receipt Date: 20110311
  Transmission Date: 20110831
  Serious: Yes (Other)
  Sender: FDA-Public Use
  Company Number: US-ELI_LILLY_AND_COMPANY-US201012004057

PATIENT
  Sex: Female

DRUGS (4)
  1. HUMALOG [Suspect]
     Dosage: 15 U, EACH EVENING
  2. HUMALOG [Suspect]
     Dosage: 5 U, OTHER
  3. HUMULIN N [Suspect]
     Indication: TYPE 2 DIABETES MELLITUS
     Dosage: 35 U, 2/D
     Dates: start: 19920101
  4. HUMALOG [Suspect]
     Indication: TYPE 2 DIABETES MELLITUS
     Dosage: 15 U, EACH MORNING

REACTIONS (8)
  - RETINAL HAEMORRHAGE [None]
  - NEUROPATHY PERIPHERAL [None]
  - CONFUSIONAL STATE [None]
  - BLINDNESS TRANSIENT [None]
  - INCOHERENT [None]
  - BLOOD GLUCOSE DECREASED [None]
  - NERVOUS SYSTEM DISORDER [None]
  - INCORRECT DOSE ADMINISTERED [None]
